FAERS Safety Report 4538045-3 (Version None)
Quarter: 2004Q4

REPORT INFORMATION
  Report Type: 
  Country: None (occurrence: None)
  Receive Date: 20041221
  Receipt Date: 20041208
  Transmission Date: 20050328
  Serious: Yes (Hospitalization)
  Sender: FDA-Public Use
  Company Number: 2004110180

PATIENT
  Age: 67 Year
  Sex: Male
  Weight: 81.6475 kg

DRUGS (2)
  1. DETROL LA [Suspect]
     Indication: BLADDER DISORDER
     Dosage: 8 MG (4 MG, BID INTERVAL: EVERY DAY), ORAL
     Route: 048
     Dates: start: 20031201
  2. OMEPRAZOLE [Concomitant]

REACTIONS (2)
  - BLADDER OPERATION [None]
  - DRUG INEFFECTIVE [None]
